FAERS Safety Report 4765456-3 (Version None)
Quarter: 2005Q3

REPORT INFORMATION
  Report Type: 
  Country: None (occurrence: None)
  Receive Date: 20050906
  Receipt Date: 20050825
  Transmission Date: 20060218
  Serious: Yes (Life-Threatening, Other)
  Sender: FDA-Public Use
  Company Number: 2005120262

PATIENT
  Age: 23 Year
  Sex: Female

DRUGS (1)
  1. ZOLOFT [Suspect]
     Indication: OBSESSIVE-COMPULSIVE DISORDER
     Dosage: 50 MG, ORAL
     Route: 048

REACTIONS (5)
  - AMNESIA [None]
  - INTENTIONAL MISUSE [None]
  - INTRACRANIAL INJURY [None]
  - OVERDOSE [None]
  - SUICIDE ATTEMPT [None]
